FAERS Safety Report 7029314-6 (Version None)
Quarter: 2010Q4

REPORT INFORMATION
  Report Type: 
  Country: None (occurrence: None)
  Receive Date: 20101005
  Receipt Date: 20100922
  Transmission Date: 20110411
  Serious: Yes (Other)
  Sender: FDA-Public Use
  Company Number: PHHY2010FR62294

PATIENT
  Age: 81 Year
  Sex: Male

DRUGS (3)
  1. TRILEPTAL [Suspect]
     Indication: PARTIAL SEIZURES
     Dosage: 300 MG IN THE MORNING AND 450 MG IN THE EVENING
     Dates: start: 20080101
  2. KEPPRA [Concomitant]
  3. XATRAL /FRA/ [Concomitant]

REACTIONS (3)
  - ARRHYTHMIA [None]
  - ATRIOVENTRICULAR BLOCK SECOND DEGREE [None]
  - BRADYCARDIA [None]
